FAERS Safety Report 23456353 (Version 1)
Quarter: 2024Q1

REPORT INFORMATION
  Report Type: Spontaneous
  Country: ES (occurrence: ES)
  Receive Date: 20240130
  Receipt Date: 20240130
  Transmission Date: 20240409
  Serious: Yes (Life-Threatening, Other)
  Sender: FDA-Public Use
  Company Number: ES-SUN PHARMACEUTICAL INDUSTRIES LTD-2024RR-429313

PATIENT
  Sex: Male

DRUGS (3)
  1. NOREPINEPHRINE [Suspect]
     Active Substance: NOREPINEPHRINE
     Indication: Product used for unknown indication
     Dosage: 1 MG/ML INJECTABLE 10 M
     Route: 040
     Dates: start: 20210414, end: 20210414
  2. ATROPINE [Suspect]
     Active Substance: ATROPINE\ATROPINE SULFATE
     Indication: Induction of anaesthesia
     Dosage: NOT ADMINISTERED
     Route: 065
  3. ATROPINE [Suspect]
     Active Substance: ATROPINE\ATROPINE SULFATE
     Indication: Medication error

REACTIONS (4)
  - Ventricular tachycardia [Recovered/Resolved]
  - Extrasystoles [Recovered/Resolved]
  - Product label confusion [Recovered/Resolved]
  - Wrong product administered [Recovered/Resolved]

NARRATIVE: CASE EVENT DATE: 20210414
